FAERS Safety Report 5191224-7 (Version None)
Quarter: 2006Q4

REPORT INFORMATION
  Report Type: 
  Country: None (occurrence: None)
  Receive Date: 20061218
  Receipt Date: 20061205
  Transmission Date: 20070319
  Serious: Yes (Hospitalization)
  Sender: FDA-Public Use
  Company Number: SP-2006-003372

PATIENT
  Age: 58 Year
  Sex: Female

DRUGS (2)
  1. VOTUM [Suspect]
     Indication: HYPERTENSION
     Dates: start: 20060810, end: 20060821
  2. VOTUM [Suspect]
     Indication: HYPERTENSION
     Dates: start: 20060831, end: 20060915

REACTIONS (1)
  - DERMATITIS [None]
